FAERS Safety Report 22000108 (Version 1)
Quarter: 2023Q1

REPORT INFORMATION
  Report Type: Spontaneous
  Country: HU (occurrence: HU)
  Receive Date: 20230216
  Receipt Date: 20230216
  Transmission Date: 20230417
  Serious: Yes (Death, Other)
  Sender: FDA-Public Use
  Company Number: HU-GLAXOSMITHKLINE-HUCH2023GSK006936

PATIENT

DRUGS (1)
  1. IBUPROFEN [Suspect]
     Active Substance: IBUPROFEN
     Indication: Carpal tunnel syndrome
     Dosage: UNK

REACTIONS (4)
  - Angioedema [Fatal]
  - Coma [Fatal]
  - Dizziness [Fatal]
  - Product tampering [Fatal]
